FAERS Safety Report 5291919-0 (Version None)
Quarter: 2007Q2

REPORT INFORMATION
  Report Type: 
  Country: None (occurrence: None)
  Receive Date: 20070410
  Receipt Date: 20070328
  Transmission Date: 20071010
  Serious: Yes (Hospitalization)
  Sender: FDA-Public Use
  Company Number: PHEH2007US03370

PATIENT
  Age: 26 Year
  Sex: Male
  Weight: 63.492 kg

DRUGS (2)
  1. REGLAN [Suspect]
     Indication: HEADACHE
     Dates: start: 20070101
  2. ZELNORM [Suspect]
     Dates: start: 20050101

REACTIONS (4)
  - ABDOMINAL PAIN [None]
  - COLITIS ISCHAEMIC [None]
  - DIARRHOEA HAEMORRHAGIC [None]
  - HEADACHE [None]
